FAERS Safety Report 8495182-9 (Version None)
Quarter: 2012Q2

REPORT INFORMATION
  Report Type: 
  Country: None (occurrence: None)
  Receive Date: 20120405
  Receipt Date: 20091202
  Transmission Date: 20120825
  Serious: Yes (Hospitalization)
  Sender: FDA-Public Use
  Company Number: PHHY2009US53352

PATIENT
  Age: 71 Year
  Sex: Female
  Weight: 81.6 kg

DRUGS (1)
  1. RECLAST [Suspect]
     Dosage: 5 MG/YEAR, INTRAVENOUS
     Route: 042
     Dates: start: 20080909

REACTIONS (2)
  - CARDIOVERSION [None]
  - ATRIAL FIBRILLATION [None]
